FAERS Safety Report 9101137 (Version 1)
Quarter: 2013Q1

REPORT INFORMATION
  Report Type: Spontaneous
  Country: US (occurrence: US)
  Receive Date: 20130218
  Receipt Date: 20130218
  Transmission Date: 20140127
  Serious: No
  Sender: FDA-Public Use
  Company Number: US-009507513-1302USA007446

PATIENT
  Age: 18 Year
  Sex: Female
  Weight: 53.61 kg

DRUGS (1)
  1. NEXPLANON [Suspect]
     Indication: CONTRACEPTION
     Dosage: 1 ROD UP TO 3 YEARS, IN LEFT ARM
     Route: 059
     Dates: start: 20130206

REACTIONS (2)
  - Implant site pain [Unknown]
  - Implant site bruising [Unknown]
